FAERS Safety Report 18068684 (Version 1)
Quarter: 2020Q3

REPORT INFORMATION
  Report Type: Spontaneous
  Country: CA (occurrence: CA)
  Receive Date: 20200724
  Receipt Date: 20200724
  Transmission Date: 20201103
  Serious: Yes (Other)
  Sender: FDA-Public Use
  Company Number: CA-B.I. PHARMACEUTICALS,INC./RIDGEFIELD-2020-BI-035880

PATIENT
  Age: 74 Year
  Sex: Female

DRUGS (3)
  1. PRAXBIND [Suspect]
     Active Substance: IDARUCIZUMAB
     Indication: CEREBROVASCULAR ACCIDENT
     Dosage: 5 G PER DOSE (2 X 2.5 G /50 ML); DOSAGE FORM: SOLUTION INTRAVENOUS
     Route: 042
  2. DABIGATRAN [Concomitant]
     Active Substance: DABIGATRAN
     Indication: PRODUCT USED FOR UNKNOWN INDICATION
     Route: 065
  3. ACTIVASE [Suspect]
     Active Substance: ALTEPLASE
     Indication: CEREBROVASCULAR ACCIDENT
     Dosage: DOSAGE FORM: NOT SPECIFIED
     Route: 042

REACTIONS (1)
  - Haemorrhagic transformation stroke [Recovered/Resolved]
